FAERS Safety Report 19196398 (Version 10)
Quarter: 2023Q4

REPORT INFORMATION
  Report Type: Report from Study
  Country: US (occurrence: US)
  Receive Date: 20210429
  Receipt Date: 20231226
  Transmission Date: 20240110
  Serious: Yes (Other)
  Sender: FDA-Public Use
  Company Number: US-TAKEDA-2021TUS027074

PATIENT
  Age: 66 Year
  Sex: Male

DRUGS (2)
  1. RECOMBINATE [Suspect]
     Active Substance: ANTIHEMOPHILIC FACTOR, HUMAN RECOMBINANT
     Indication: Product used for unknown indication
     Dosage: 2000 INTERNATIONAL UNIT
     Route: 042
  2. RECOMBINATE [Suspect]
     Active Substance: ANTIHEMOPHILIC FACTOR, HUMAN RECOMBINANT
     Dosage: 2000 INTERNATIONAL UNIT
     Route: 050

REACTIONS (12)
  - Haemarthrosis [Unknown]
  - Haemorrhage [Unknown]
  - Arthropathy [Unknown]
  - Arthritis [Unknown]
  - Arthralgia [Recovering/Resolving]
  - Gastroenteritis viral [Unknown]
  - Arthropathy [Recovering/Resolving]
  - Joint effusion [Unknown]
  - Influenza like illness [Recovered/Resolved]
  - Gastrointestinal disorder [Recovered/Resolved]
  - Joint injury [Unknown]
  - Asthenia [Recovered/Resolved]

NARRATIVE: CASE EVENT DATE: 20220428
